FAERS Safety Report 11037190 (Version 2)
Quarter: 2017Q3

REPORT INFORMATION
  Report Type: Spontaneous
  Country: US (occurrence: US)
  Receive Date: 20150416
  Receipt Date: 20170818
  Transmission Date: 20171127
  Serious: No
  Sender: FDA-Public Use
  Company Number: US-ASTRAZENECA-2015SE34337

PATIENT
  Age: 749 Month
  Sex: Female
  Weight: 99.8 kg

DRUGS (7)
  1. BYDUREON [Suspect]
     Active Substance: EXENATIDE
     Indication: TYPE 2 DIABETES MELLITUS
     Route: 058
     Dates: start: 201707
  2. ASPIRIN. [Concomitant]
     Active Substance: ASPIRIN
     Dosage: 81.0MG AS REQUIRED
     Route: 048
  3. SYNTHROID [Concomitant]
     Active Substance: LEVOTHYROXINE SODIUM
     Indication: AUTOIMMUNE THYROIDITIS
     Route: 048
  4. LORCASERIN [Concomitant]
     Active Substance: LORCASERIN HYDROCHLORIDE
  5. METFORMIN [Concomitant]
     Active Substance: METFORMIN HYDROCHLORIDE
     Indication: TYPE 2 DIABETES MELLITUS
     Route: 048
  6. VITAMIN D [Concomitant]
     Active Substance: CHOLECALCIFEROL
     Dosage: DAILY
     Route: 048
  7. BYDUREON [Suspect]
     Active Substance: EXENATIDE
     Indication: TYPE 2 DIABETES MELLITUS
     Route: 058
     Dates: end: 201704

REACTIONS (7)
  - Blood glucose increased [Recovered/Resolved]
  - Insurance issue [Unknown]
  - Product packaging quantity issue [Unknown]
  - Stress [Unknown]
  - Fall [Unknown]
  - Weight increased [Unknown]
  - Drug dose omission [Unknown]

NARRATIVE: CASE EVENT DATE: 201503
